FAERS Safety Report 5216570-X (Version None)
Quarter: 2007Q1

REPORT INFORMATION
  Report Type: 
  Country: None (occurrence: None)
  Receive Date: 20061130
  Receipt Date: 20060814
  Transmission Date: 20070707
  Serious: Yes (Other)
  Sender: FDA-Public Use
  Company Number: US200608003227

PATIENT
  Sex: Female
  Weight: 104.3 kg

DRUGS (1)
  1. ZYPREXA [Suspect]

REACTIONS (8)
  - BLOOD CHOLESTEROL INCREASED [None]
  - BLOOD TRIGLYCERIDES INCREASED [None]
  - DIABETES MELLITUS [None]
  - DIABETIC COMA [None]
  - METABOLIC DISORDER [None]
  - MUMPS [None]
  - OBESITY [None]
  - VISION BLURRED [None]
